FAERS Safety Report 9342474 (Version 1)
Quarter: 2013Q2

REPORT INFORMATION
  Report Type: Report from Study
  Country: NL (occurrence: NL)
  Receive Date: 20130611
  Receipt Date: 20130611
  Transmission Date: 20140414
  Serious: Yes (Hospitalization)
  Sender: FDA-Public Use
  Company Number: PHHY2013NL058804

PATIENT
  Age: 68 Year
  Sex: Female

DRUGS (10)
  1. ACLASTA [Suspect]
     Indication: OSTEOPOROSIS
     Dosage: 5 MG, UNK
     Route: 042
     Dates: start: 20090616
  2. ACLASTA [Suspect]
     Dosage: 5 MG, YEARLY
     Route: 042
     Dates: start: 20120612
  3. ACLASTA [Suspect]
     Dosage: 5 MG, YEARLY
     Route: 042
     Dates: start: 20130610
  4. ATORVASTATIN [Concomitant]
     Dosage: 40 MG, UNK
  5. BRILIQUE [Concomitant]
     Dosage: 90 MG, UNK
  6. CARBASALATE CALCIUM [Concomitant]
     Dosage: 100 MG, UNK
  7. MEBUTAN [Concomitant]
  8. METOPROLOL RETARD GEA [Concomitant]
  9. NEXIUM 1-2-3 [Concomitant]
  10. PERINDOPRIL [Concomitant]

REACTIONS (1)
  - Myocardial infarction [Recovering/Resolving]
